FAERS Safety Report 5218387-9 (Version None)
Quarter: 2007Q1

REPORT INFORMATION
  Report Type: 
  Country: None (occurrence: None)
  Receive Date: 20061130
  Receipt Date: 20060901
  Transmission Date: 20070707
  Serious: Yes (Other)
  Sender: FDA-Public Use
  Company Number: US200605006367

PATIENT
  Age: 47 Year
  Sex: Female
  Weight: 39 kg

DRUGS (1)
  1. ZYPREXA [Suspect]
     Dosage: SEE IMAGE
     Dates: start: 19990101

REACTIONS (6)
  - HYPERGLYCAEMIA [None]
  - HYPERTENSION [None]
  - HYPOGLYCAEMIA [None]
  - PANCREATITIS [None]
  - VISION BLURRED [None]
  - WEIGHT DECREASED [None]
